FAERS Safety Report 12074622 (Version 3)
Quarter: 2016Q4

REPORT INFORMATION
  Report Type: Spontaneous
  Country: FR (occurrence: FR)
  Receive Date: 20160212
  Receipt Date: 20161115
  Transmission Date: 20170206
  Serious: Yes (Death)
  Sender: FDA-Public Use
  Company Number: FR-BAUSCH-BL-2016-003185

PATIENT
  Age: 3 Day
  Sex: Female
  Weight: 2.13 kg

DRUGS (1)
  1. AMMONUL [Suspect]
     Active Substance: SODIUM BENZOATE\SODIUM PHENYLACETATE
     Indication: HYPERAMMONAEMIA
     Route: 042
     Dates: start: 20151206, end: 20151206

REACTIONS (3)
  - Tachycardia [Fatal]
  - Hyperthermia [Fatal]
  - Irritability [Fatal]

NARRATIVE: CASE EVENT DATE: 20151206
